FAERS Safety Report 12657227 (Version 1)
Quarter: 2016Q3

REPORT INFORMATION
  Report Type: Spontaneous
  Country: US (occurrence: US)
  Receive Date: 20160816
  Receipt Date: 20160816
  Transmission Date: 20161109
  Serious: Yes (Other)
  Sender: FDA-Public Use
  Company Number: US-ALLERGAN-1664951US

PATIENT
  Age: 75 Year
  Sex: Female

DRUGS (2)
  1. ALPHAGAN P [Suspect]
     Active Substance: BRIMONIDINE TARTRATE
     Indication: GLAUCOMA
     Dosage: 2 GTT, BID
     Route: 047
     Dates: start: 201604
  2. TRAVATAN [Concomitant]
     Active Substance: TRAVOPROST
     Indication: GLAUCOMA
     Dosage: UNK, QHS
     Route: 047

REACTIONS (7)
  - Inappropriate schedule of drug administration [Unknown]
  - Malaise [Unknown]
  - Secretion discharge [Unknown]
  - Retching [Recovered/Resolved]
  - Drug dose omission [Unknown]
  - Eye irritation [Not Recovered/Not Resolved]
  - Chronic obstructive pulmonary disease [Unknown]
